FAERS Safety Report 6072627-5 (Version None)
Quarter: 2009Q1

REPORT INFORMATION
  Report Type: 
  Country: None (occurrence: None)
  Receive Date: 20090210
  Receipt Date: 20081210
  Transmission Date: 20090719
  Serious: Yes (Life-Threatening, Hospitalization)
  Sender: FDA-Public Use
  Company Number: DE-PFIZER INC-2008151557

PATIENT

DRUGS (6)
  1. DEMETRIN [Suspect]
     Indication: SEDATION
     Dosage: UNK
     Route: 048
     Dates: start: 20060113
  2. ALPRAZOLAM [Suspect]
     Indication: SEDATION
     Dosage: UNK
     Route: 048
     Dates: start: 20060120
  3. FORTECORTIN [Suspect]
     Indication: PROPHYLAXIS
     Dosage: 8 MG, 3X/DAY
     Route: 048
     Dates: start: 20060112
  4. ZENTROPIL [Suspect]
     Indication: CONVULSION
     Dosage: 250 MG
     Route: 048
     Dates: start: 20060113
  5. LORAZEPAM [Suspect]
     Indication: SEDATION
     Dosage: UNK
     Route: 048
     Dates: start: 20060113
  6. VALIUM [Suspect]
     Indication: SEDATION
     Dosage: UNK
     Route: 048
     Dates: start: 20060113

REACTIONS (2)
  - STEVENS-JOHNSON SYNDROME [None]
  - TOXIC EPIDERMAL NECROLYSIS [None]
